FAERS Safety Report 11142117 (Version 1)
Quarter: 2015Q2

REPORT INFORMATION
  Report Type: Spontaneous
  Country: US (occurrence: US)
  Receive Date: 20150527
  Receipt Date: 20150527
  Transmission Date: 20150821
  Serious: Yes (Hospitalization)
  Sender: FDA-Public Use
  Company Number: US-MALLINCKRODT-QSC-2014-0573

PATIENT
  Age: 57 Year
  Sex: Female
  Weight: 65.76 kg

DRUGS (14)
  1. NAPROXEN. [Concomitant]
     Active Substance: NAPROXEN
     Dosage: 250 MG, BID
     Route: 048
     Dates: start: 20140926
  2. H.P. ACTHAR [Suspect]
     Active Substance: CORTICOTROPIN
     Dosage: 40 UNITS, QD FOR 10 DAYS
     Route: 058
     Dates: start: 20130826, end: 20130905
  3. H.P. ACTHAR [Suspect]
     Active Substance: CORTICOTROPIN
     Dosage: 40 UNITS, QD FOR 10 DAYS
     Route: 058
     Dates: start: 20131118, end: 20131128
  4. PREDNISONE. [Concomitant]
     Active Substance: PREDNISONE
     Dosage: 10 MG, TID FOR 3 DAYS
     Dates: start: 20140926, end: 20140928
  5. PREDNISONE. [Concomitant]
     Active Substance: PREDNISONE
     Dosage: 10 MG, BID FOR 3 DAYS
     Dates: start: 20140929, end: 20141001
  6. H.P. ACTHAR [Suspect]
     Active Substance: CORTICOTROPIN
     Dosage: 40 UNITS, QD FOR 10 DAYS
     Route: 058
     Dates: start: 20140822, end: 20140902
  7. LORATADINE. [Concomitant]
     Active Substance: LORATADINE
     Dosage: 10 MG, QD
     Route: 048
  8. H.P. ACTHAR [Suspect]
     Active Substance: CORTICOTROPIN
     Indication: MULTIPLE SCLEROSIS
     Dosage: 40 UNITS, QD FOR 10 DAYS
     Route: 058
     Dates: start: 20121010, end: 20121020
  9. TECFIDERA [Concomitant]
     Active Substance: DIMETHYL FUMARATE
     Dosage: 240 MG, BID
     Route: 048
     Dates: start: 20140608
  10. PREDNISONE. [Concomitant]
     Active Substance: PREDNISONE
     Dosage: 10 MG, QD FOR 3 DAYS
     Dates: start: 20141002, end: 20141004
  11. KLONOPIN [Concomitant]
     Active Substance: CLONAZEPAM
     Dosage: 2 MG, BID
     Route: 048
     Dates: start: 20140926
  12. H.P. ACTHAR [Suspect]
     Active Substance: CORTICOTROPIN
     Dosage: 40 UNITS, QD FOR 10 DAYS
     Route: 058
     Dates: start: 20130523, end: 20130603
  13. H.P. ACTHAR [Suspect]
     Active Substance: CORTICOTROPIN
     Dosage: 40 UNITS, QD FOR 10 DAYS
     Route: 058
     Dates: start: 20140513, end: 20140523
  14. PROAIR HFA [Concomitant]
     Active Substance: ALBUTEROL SULFATE
     Dosage: 2 HFA AEROSOL WITH ADAPTER (GRAM) IH 4 TIMES A DAY PRN
     Route: 055

REACTIONS (13)
  - Drug ineffective [Recovered/Resolved]
  - Weight increased [Recovered/Resolved]
  - Asthenia [Recovered/Resolved]
  - Neuropathy peripheral [Unknown]
  - Dysphagia [Unknown]
  - Swelling face [Recovered/Resolved]
  - Urinary tract pain [Unknown]
  - Injection site bruising [Recovered/Resolved]
  - Injection site haemorrhage [Recovered/Resolved]
  - Injection site reaction [Recovered/Resolved]
  - Ataxia [Unknown]
  - Neck pain [Unknown]
  - Visual impairment [Unknown]

NARRATIVE: CASE EVENT DATE: 20131016
